FAERS Safety Report 21498919 (Version 1)
Quarter: 2022Q4

REPORT INFORMATION
  Report Type: Spontaneous
  Country: IE (occurrence: IE)
  Receive Date: 20221024
  Receipt Date: 20221024
  Transmission Date: 20230113
  Serious: Yes (Other)
  Sender: FDA-Public Use
  Company Number: IE-MYLANLABS-2022M1112437

PATIENT
  Sex: Male

DRUGS (1)
  1. CLOZARIL [Suspect]
     Active Substance: CLOZAPINE
     Indication: Schizophrenia
     Dosage: UNK
     Route: 048
     Dates: start: 20120808, end: 20210921

REACTIONS (7)
  - Hallucination, auditory [Unknown]
  - Mental impairment [Unknown]
  - Benign ethnic neutropenia [Unknown]
  - Agitation [Unknown]
  - Aggression [Unknown]
  - Persecutory delusion [Unknown]
  - Somatic delusion [Unknown]
